FAERS Safety Report 9001961 (Version 1)
Quarter: 2013Q1

REPORT INFORMATION
  Report Type: Spontaneous
  Country: IE (occurrence: IE)
  Receive Date: 20130108
  Receipt Date: 20130108
  Transmission Date: 20140127
  Serious: Yes (Other)
  Sender: FDA-Public Use
  Company Number: IE-BIOGENIDEC-2012BI045716

PATIENT
  Age: 34 Year
  Sex: Male

DRUGS (5)
  1. TYSABRI [Suspect]
     Indication: RELAPSING-REMITTING MULTIPLE SCLEROSIS
     Dates: start: 20100329, end: 201209
  2. TYSABRI [Suspect]
     Indication: RELAPSING-REMITTING MULTIPLE SCLEROSIS
     Dates: start: 20121116
  3. VALPROATE [Concomitant]
     Indication: EPILEPSY
  4. LAMOTRIGINE [Concomitant]
     Indication: EPILEPSY
  5. LEVETIRACETAM [Concomitant]

REACTIONS (1)
  - Epilepsy [Unknown]
